FAERS Safety Report 12437795 (Version 1)
Quarter: 2016Q2

REPORT INFORMATION
  Report Type: Spontaneous
  Country: US (occurrence: None)
  Receive Date: 20160603
  Receipt Date: 20160603
  Transmission Date: 20160815
  Serious: No
  Sender: FDA-Public Use
  Company Number: None

PATIENT
  Sex: Male

DRUGS (19)
  1. TRAMADOL. [Concomitant]
     Active Substance: TRAMADOL
  2. PLAVIX [Concomitant]
     Active Substance: CLOPIDOGREL BISULFATE
  3. ZYTIGA [Suspect]
     Active Substance: ABIRATERONE ACETATE
     Indication: PROSTATE CANCER
     Route: 048
     Dates: start: 20140808
  4. ASPIRIN. [Concomitant]
     Active Substance: ASPIRIN
  5. LISINOPRIL. [Concomitant]
     Active Substance: LISINOPRIL
  6. PREDNISONE. [Concomitant]
     Active Substance: PREDNISONE
  7. LEUPROLIDE [Concomitant]
     Active Substance: LEUPROLIDE
  8. PROST-AGLANDIN [Concomitant]
  9. PREDNISOLOONE [Concomitant]
  10. NAMENDA [Concomitant]
     Active Substance: MEMANTINE HYDROCHLORIDE
  11. OSTEO-BIFLEX [Concomitant]
  12. APAP [Concomitant]
     Active Substance: ACETAMINOPHEN
  13. METAMUCIL [Concomitant]
     Active Substance: PLANTAGO SEED
  14. LIPITOR [Concomitant]
     Active Substance: ATORVASTATIN CALCIUM
  15. TAMSULOSIN [Concomitant]
     Active Substance: TAMSULOSIN
  16. FENOFIBRATE. [Concomitant]
     Active Substance: FENOFIBRATE
  17. MULTI-VIT. [Concomitant]
  18. CLARINEX D [Concomitant]
  19. EXTAVIA [Concomitant]
     Active Substance: INTERFERON BETA-1B

REACTIONS (1)
  - Skin disorder [None]

NARRATIVE: CASE EVENT DATE: 2016
